FAERS Safety Report 5108275-0 (Version None)
Quarter: 2006Q3

REPORT INFORMATION
  Report Type: 
  Country: None (occurrence: None)
  Receive Date: 20060919
  Receipt Date: 20051227
  Transmission Date: 20061208
  Serious: No
  Sender: FDA-Public Use
  Company Number: US-BRISTOL-MYERS SQUIBB COMPANY-13229943

PATIENT
  Sex: Male

DRUGS (1)
  1. MEGACE [Suspect]
     Indication: INCREASED APPETITE

REACTIONS (3)
  - DRY MOUTH [None]
  - DYSPNOEA [None]
  - ERUCTATION [None]
